FAERS Safety Report 21339200 (Version 2)
Quarter: 2022Q4

REPORT INFORMATION
  Report Type: Report from Study
  Country: FR (occurrence: FR)
  Receive Date: 20220915
  Receipt Date: 20221229
  Transmission Date: 20230113
  Serious: Yes (Hospitalization, Other)
  Sender: FDA-Public Use
  Company Number: FR-GILEAD-2022-0576777

PATIENT
  Sex: Female
  Weight: 54 kg

DRUGS (4)
  1. SACITUZUMAB GOVITECAN-HZIY [Suspect]
     Active Substance: SACITUZUMAB GOVITECAN-HZIY
     Indication: Triple negative breast cancer
     Dosage: 10 MG/KG C1 D1+D8
     Route: 042
     Dates: start: 20220218, end: 20220225
  2. SACITUZUMAB GOVITECAN-HZIY [Suspect]
     Active Substance: SACITUZUMAB GOVITECAN-HZIY
     Dosage: 10 MG/KG C3 D1+D8
     Route: 042
     Dates: start: 20220401, end: 20220408
  3. SACITUZUMAB GOVITECAN-HZIY [Suspect]
     Active Substance: SACITUZUMAB GOVITECAN-HZIY
     Dosage: 10 MG/KG C4D1+D8
     Route: 042
     Dates: start: 20220422, end: 20220429
  4. SACITUZUMAB GOVITECAN-HZIY [Suspect]
     Active Substance: SACITUZUMAB GOVITECAN-HZIY
     Dosage: 10 MG/KG C5 D1-D8
     Route: 042
     Dates: start: 20220603, end: 20220610

REACTIONS (2)
  - Respiratory distress [Recovered/Resolved]
  - General physical condition abnormal [Unknown]

NARRATIVE: CASE EVENT DATE: 20220621
